FAERS Safety Report 5215885-9 (Version None)
Quarter: 2007Q1

REPORT INFORMATION
  Report Type: 
  Country: None (occurrence: None)
  Receive Date: 20070118
  Receipt Date: 20070113
  Transmission Date: 20070707
  Serious: Yes (Death)
  Sender: FDA-Public Use
  Company Number: 163-21880-07010710

PATIENT
  Age: 52 Year
  Sex: Male

DRUGS (1)
  1. REVLIMID [Suspect]
     Indication: PROSTATE CANCER
     Dosage: 5 MG, 1 IN 1 D, ORAL
     Route: 048
     Dates: start: 20061128, end: 20061201

REACTIONS (1)
  - DEATH [None]
